FAERS Safety Report 4294694-1 (Version None)
Quarter: 2004Q1

REPORT INFORMATION
  Report Type: 
  Country: None (occurrence: None)
  Receive Date: 20040213
  Receipt Date: 20021106
  Transmission Date: 20041129
  Serious: Yes (Hospitalization)
  Sender: FDA-Public Use
  Company Number: BR-ROCHE-324968

PATIENT
  Age: 40 Year
  Sex: Male
  Weight: 65.8 kg

DRUGS (14)
  1. ENFUVIRTIDE [Suspect]
     Indication: HIV INFECTION
     Route: 058
     Dates: start: 20020716, end: 20021025
  2. ENFUVIRTIDE [Suspect]
     Route: 058
     Dates: start: 20021108
  3. SAQUINAVIR [Suspect]
     Indication: HIV INFECTION
     Route: 065
     Dates: start: 20020716, end: 20021025
  4. SAQUINAVIR [Suspect]
     Route: 065
     Dates: start: 20021108
  5. DIDANOSINE [Concomitant]
     Indication: HIV INFECTION
     Dosage: THERAPY WAS INTERRUPTED BETWEEN 25 OCT 2002 AND 8 NOV 2002.
     Route: 065
     Dates: start: 20000928
  6. STAVUDINE [Concomitant]
     Indication: HIV INFECTION
     Dosage: THERAPY WAS INTERRUPTED BETWEEN 25 OCT 2002 AND 8 NOV 2002
     Route: 065
     Dates: start: 20000928
  7. RITONAVIR [Suspect]
     Indication: HIV INFECTION
     Route: 065
     Dates: start: 20020716, end: 20021025
  8. RITONAVIR [Suspect]
     Route: 065
     Dates: start: 20021108
  9. SULFADIAZINE [Concomitant]
     Dates: start: 20011226, end: 20021025
  10. PYRIMETHAMINE [Concomitant]
     Dosage: THERAPY WAS INTERRUPTED BETWEEN 25 OCT 2002 AND 8 NOV 2002.
     Dates: start: 20011226
  11. SULFADIAZINE [Concomitant]
     Dates: start: 20021108
  12. FLUOXETINE [Concomitant]
     Dates: start: 20021107
  13. SULFADIAZINE [Concomitant]
     Dates: start: 20011226, end: 20021025
  14. PIRIMETAMINA [Concomitant]
     Dates: start: 20011226, end: 20021025

REACTIONS (1)
  - VOMITING [None]
